FAERS Safety Report 7739514-5 (Version None)
Quarter: 2011Q3

REPORT INFORMATION
  Report Type: 
  Country: None (occurrence: None)
  Receive Date: 20110909
  Receipt Date: 20110906
  Transmission Date: 20111222
  Serious: Yes (Other)
  Sender: FDA-Public Use
  Company Number: US-BRISTOL-MYERS SQUIBB COMPANY-15557309

PATIENT
  Age: 70 Year
  Sex: Female

DRUGS (2)
  1. ENBREL [Suspect]
     Dosage: 2ND INF:23FEB2011
  2. ORENCIA [Suspect]
     Indication: RHEUMATOID ARTHRITIS
     Dosage: 1ST INFUSION. 2ND INF:23FEB11,LAST INF: 29JUN11
     Route: 042

REACTIONS (5)
  - FIBROMYALGIA [None]
  - OEDEMA PERIPHERAL [None]
  - PAIN [None]
  - CARDIAC FAILURE [None]
  - ERYTHEMA [None]
